FAERS Safety Report 6094289-3 (Version None)
Quarter: 2009Q1

REPORT INFORMATION
  Report Type: 
  Country: None (occurrence: None)
  Receive Date: 20090226
  Receipt Date: 20080430
  Transmission Date: 20090719
  Serious: No
  Sender: FDA-Public Use
  Company Number: US-TYCO HEALTHCARE/MALLINCKRODT-T200800774

PATIENT

DRUGS (2)
  1. TECHNESCAN [Suspect]
     Indication: BONE SCAN
     Dates: start: 20080401, end: 20080401
  2. ULTRA-TECHNEKOW [Concomitant]
     Indication: BONE SCAN
     Dates: start: 20080401, end: 20080401

REACTIONS (1)
  - DRUG INEFFECTIVE [None]
